FAERS Safety Report 7971256-3 (Version None)
Quarter: 2011Q4

REPORT INFORMATION
  Report Type: 
  Country: None (occurrence: None)
  Receive Date: 20111122
  Receipt Date: 20110801
  Transmission Date: 20120403
  Serious: No
  Sender: FDA-Public Use
  Company Number: PHHY2011US69576

PATIENT
  Age: 29 Year
  Sex: Female
  Weight: 102 kg

DRUGS (9)
  1. EFFEXOR [Concomitant]
  2. LOESTRIN 1.5/30 [Concomitant]
  3. ABILIFY [Concomitant]
  4. VERAPAMIL [Concomitant]
  5. PROVIGIL [Concomitant]
  6. TEGRETOL [Concomitant]
  7. BACLOFEN [Concomitant]
  8. GILENYA [Suspect]
     Dosage: 1 DF, QD, ORAL
     Route: 048
  9. PRILOSEC [Concomitant]

REACTIONS (2)
  - EYE HAEMORRHAGE [None]
  - OEDEMA PERIPHERAL [None]
